FAERS Safety Report 22241988 (Version 3)
Quarter: 2025Q1

REPORT INFORMATION
  Report Type: Report from Study
  Country: CO (occurrence: CO)
  Receive Date: 20230421
  Receipt Date: 20250218
  Transmission Date: 20250408
  Serious: Yes (Disabling, Congenital Anomaly, Other)
  Sender: NOVARTIS
  Company Number: CO-002147023-NVSC2023CO091168

PATIENT
  Sex: Male

DRUGS (3)
  1. COSENTYX [Suspect]
     Active Substance: SECUKINUMAB
     Indication: Maternal exposure via partner during pregnancy
     Route: 065
  2. FOLIC ACID [Concomitant]
     Active Substance: FOLIC ACID
     Indication: Foetal exposure during pregnancy
     Route: 064
  3. IRON [Concomitant]
     Active Substance: IRON
     Indication: Foetal exposure during pregnancy
     Route: 064

REACTIONS (4)
  - Congenital musculoskeletal disorder of spine [Unknown]
  - Meningocele [Unknown]
  - Foetal exposure via father [Unknown]
  - Motor developmental delay [Unknown]
